FAERS Safety Report 15003140 (Version 2)
Quarter: 2018Q2

REPORT INFORMATION
  Report Type: Spontaneous
  Country: CR (occurrence: CR)
  Receive Date: 20180613
  Receipt Date: 20180618
  Transmission Date: 20180711
  Serious: Yes (Other)
  Sender: FDA-Public Use
  Company Number: CR-ROCHE-2138336

PATIENT
  Sex: Female

DRUGS (1)
  1. HERCEPTIN [Suspect]
     Active Substance: TRASTUZUMAB
     Indication: BREAST CANCER
     Route: 058

REACTIONS (4)
  - Burning sensation [Unknown]
  - Application site inflammation [Unknown]
  - Pruritus [Unknown]
  - Application site oedema [Unknown]

NARRATIVE: CASE EVENT DATE: 20180608
